FAERS Safety Report 7379268-8 (Version None)
Quarter: 2011Q1

REPORT INFORMATION
  Report Type: 
  Country: None (occurrence: None)
  Receive Date: 20110328
  Receipt Date: 20110325
  Transmission Date: 20110831
  Serious: Yes (Life-Threatening, Other)
  Sender: FDA-Public Use
  Company Number: GB-BRISTOL-MYERS SQUIBB COMPANY-15635345

PATIENT
  Age: 74 Year
  Sex: Male
  Weight: 86 kg

DRUGS (10)
  1. RAMIPRIL [Concomitant]
  2. GLYCERYL TRINITRATE [Concomitant]
  3. PIOGLITAZONE HCL [Concomitant]
  4. SAXAGLIPTIN [Suspect]
     Indication: TYPE 1 DIABETES MELLITUS
     Route: 048
  5. FUROSEMIDE [Concomitant]
  6. BISOPROLOL [Concomitant]
  7. ATORVASTATIN CALCIUM [Concomitant]
  8. INSULIN DETEMIR [Concomitant]
  9. NOVORAPID [Concomitant]
  10. ASPIRIN [Concomitant]

REACTIONS (3)
  - CIRCULATORY COLLAPSE [None]
  - VOMITING [None]
  - MEMORY IMPAIRMENT [None]
